FAERS Safety Report 6864008-9 (Version None)
Quarter: 2010Q3

REPORT INFORMATION
  Report Type: 
  Country: None (occurrence: None)
  Receive Date: 20100720
  Receipt Date: 20100712
  Transmission Date: 20110219
  Serious: Yes (Hospitalization)
  Sender: FDA-Public Use
  Company Number: KV201000209

PATIENT
  Age: 71 Year
  Sex: Male

DRUGS (9)
  1. MORPHINE SULFATE [Suspect]
     Indication: PAIN
     Dosage: 60 MG, TID, ORAL
     Route: 048
     Dates: start: 20080222, end: 20080322
  2. MORPHINE SULFATE [Suspect]
     Indication: PAIN
     Dosage: 60 MG, TID, ORAL
     Route: 048
     Dates: start: 20080411, end: 20080511
  3. MORPHINE [Concomitant]
  4. PANTOPRAZOLE SODIUM [Concomitant]
  5. MELOXICAM [Concomitant]
  6. CRESTOR [Concomitant]
  7. AVALIDE [Concomitant]
  8. LASIX [Concomitant]
  9. COUMADIN [Concomitant]

REACTIONS (16)
  - ATRIAL FIBRILLATION [None]
  - CARDIAC FAILURE CONGESTIVE [None]
  - CHEST DISCOMFORT [None]
  - DIZZINESS [None]
  - DYSPNOEA [None]
  - EXERCISE TOLERANCE DECREASED [None]
  - FATIGUE [None]
  - LABILE BLOOD PRESSURE [None]
  - LEFT VENTRICULAR HYPERTROPHY [None]
  - MALAISE [None]
  - MUSCLE SPASMS [None]
  - MYALGIA [None]
  - OEDEMA PERIPHERAL [None]
  - OVERDOSE [None]
  - SOMNOLENCE [None]
  - VERTIGO [None]
